FAERS Safety Report 5301327-1 (Version None)
Quarter: 2007Q2

REPORT INFORMATION
  Report Type: 
  Country: None (occurrence: None)
  Receive Date: 20070412
  Receipt Date: 20070406
  Transmission Date: 20071010
  Serious: Yes (Hospitalization)
  Sender: FDA-Public Use
  Company Number: 2006-05339

PATIENT
  Sex: Male
  Weight: 86.2 kg

DRUGS (7)
  1. PREDNISOLONE [Suspect]
     Indication: CHRONIC INFLAMMATORY DEMYELINATING POLYRADICULONEUROPATHY
     Dosage: 3 TABLET, BID, ORAL
     Route: 048
     Dates: start: 20050901, end: 20051101
  2. UNSP ANTI-VIRALS [Concomitant]
  3. MORPHINE [Concomitant]
  4. MEPERIDINE HCL [Concomitant]
  5. VALIUM [Concomitant]
  6. WELLNESS WITH ECHINACEA, GOLDEN SEAL [Concomitant]
  7. TRAZODONE HCL [Concomitant]

REACTIONS (22)
  - AGEUSIA [None]
  - ATRIAL FIBRILLATION [None]
  - BLINDNESS [None]
  - BONE MARROW FAILURE [None]
  - CARDIOVASCULAR INSUFFICIENCY [None]
  - CONDITION AGGRAVATED [None]
  - COORDINATION ABNORMAL [None]
  - DEAFNESS TRANSITORY [None]
  - DELIRIUM [None]
  - FALL [None]
  - GAIT DISTURBANCE [None]
  - GENERALISED OEDEMA [None]
  - HYPERSENSITIVITY [None]
  - HYPOTHYROIDISM [None]
  - INFECTION [None]
  - MENTAL DISORDER [None]
  - MUSCULAR WEAKNESS [None]
  - PULMONARY EMBOLISM [None]
  - PULMONARY HYPERTENSION [None]
  - PULMONARY OEDEMA [None]
  - RENAL FAILURE [None]
  - WEIGHT INCREASED [None]
